FAERS Safety Report 5745988-1 (Version None)
Quarter: 2008Q2

REPORT INFORMATION
  Report Type: 
  Country: None (occurrence: None)
  Receive Date: 20080520
  Receipt Date: 20080505
  Transmission Date: 20081010
  Serious: Yes (Hospitalization)
  Sender: FDA-Public Use
  Company Number: 2008AL003296

PATIENT
  Sex: Female

DRUGS (4)
  1. DIGOXIN [Suspect]
     Indication: CARDIAC DISORDER
     Dosage: DAILY, PO
     Route: 048
     Dates: start: 20060101
  2. LEXAPRO [Concomitant]
  3. COUMADIN [Concomitant]
  4. LISINOPRIL [Concomitant]

REACTIONS (3)
  - HAEMORRHAGE [None]
  - HEART RATE DECREASED [None]
  - RENAL DISORDER [None]
